FAERS Safety Report 12239188 (Version 1)
Quarter: 2016Q2

REPORT INFORMATION
  Report Type: Spontaneous
  Country: CN (occurrence: CN)
  Receive Date: 20160405
  Receipt Date: 20160405
  Transmission Date: 20160815
  Serious: Yes (Other)
  Sender: FDA-Public Use
  Company Number: CN-BAXTER-2016BAX016814

PATIENT
  Age: 33 Year
  Sex: Female
  Weight: 44 kg

DRUGS (20)
  1. CYCLOPHOSPHAMIDE. [Suspect]
     Active Substance: CYCLOPHOSPHAMIDE
     Indication: BREAST CANCER
     Route: 041
     Dates: start: 20150906, end: 20150906
  2. AONUOXIAN [Suspect]
     Active Substance: DEXRAZOXANE
     Dosage: DOSE RE-INTRODUCED
     Route: 041
  3. XINSHUNER [Suspect]
     Active Substance: TROPISETRON HYDROCHLORIDE
     Dosage: DOSE RE-INTRODUCED
     Route: 041
  4. 0.9% SODIUM CHLORIDE INJECTION [Suspect]
     Active Substance: SODIUM CHLORIDE
     Indication: MEDICATION DILUTION
     Dosage: SOLVENT FOR EPIRUBICIN HYDROCHLORIDE FOR INJECTION
     Route: 041
     Dates: start: 20150906, end: 20150906
  5. 0.9% SODIUM CHLORIDE INJECTION [Suspect]
     Active Substance: SODIUM CHLORIDE
     Dosage: SOLVENT FOR XINSHUNER
     Route: 041
     Dates: start: 20150906, end: 20150906
  6. 0.9% SODIUM CHLORIDE INJECTION [Suspect]
     Active Substance: SODIUM CHLORIDE
     Dosage: DOSE RE-INTRODUCED, SOLVENT FOR CYCLOPHOSPHAMIDE FOR INJECTION
     Route: 041
  7. CYCLOPHOSPHAMIDE. [Suspect]
     Active Substance: CYCLOPHOSPHAMIDE
     Dosage: DOSE RE-INTRODUCED
     Route: 041
  8. AONUOXIAN [Suspect]
     Active Substance: DEXRAZOXANE
     Indication: BREAST CANCER
     Route: 041
     Dates: start: 20150906, end: 20150906
  9. 0.9% SODIUM CHLORIDE INJECTION [Suspect]
     Active Substance: SODIUM CHLORIDE
     Dosage: SOLVENT FOR LOSEC
     Route: 041
     Dates: start: 20150906, end: 20150906
  10. 0.9% SODIUM CHLORIDE INJECTION [Suspect]
     Active Substance: SODIUM CHLORIDE
     Dosage: SOLVENT FOR CYCLOPHOSPHAMIDE FOR INJECTION
     Route: 041
     Dates: start: 20150906, end: 20150906
  11. PHARMORUBICIN [Suspect]
     Active Substance: EPIRUBICIN
     Indication: BREAST CANCER
     Route: 041
     Dates: start: 20150906, end: 20150906
  12. LOSEC [Suspect]
     Active Substance: OMEPRAZOLE
     Dosage: DOSE RE-INTRODUCED
     Route: 041
  13. 0.9% SODIUM CHLORIDE INJECTION [Suspect]
     Active Substance: SODIUM CHLORIDE
     Dosage: DOSE RE-INTRODUCED, SOLVENT FOR XINSHUNER
     Route: 041
  14. 0.9% SODIUM CHLORIDE INJECTION [Suspect]
     Active Substance: SODIUM CHLORIDE
     Dosage: DOSE RE-INTRODUCED, SOLVENT FOR LOSEC
     Route: 041
  15. 0.9% SODIUM CHLORIDE INJECTION [Suspect]
     Active Substance: SODIUM CHLORIDE
     Dosage: SOLVENT FOR EPIRUBICIN HYDROCHLORIDE FOR INJECTION, DOSE RE-INTRODUCED
     Route: 041
  16. XINSHUNER [Suspect]
     Active Substance: TROPISETRON HYDROCHLORIDE
     Indication: BREAST CANCER
     Route: 041
     Dates: start: 20150906, end: 20150906
  17. 0.9% SODIUM CHLORIDE INJECTION [Suspect]
     Active Substance: SODIUM CHLORIDE
     Dosage: SOLVENT FOR AONUOXIAN
     Route: 041
     Dates: start: 20150906, end: 20150906
  18. 0.9% SODIUM CHLORIDE INJECTION [Suspect]
     Active Substance: SODIUM CHLORIDE
     Dosage: DOSE RE-INTRODUCED, SOLVENT FOR AONUOXIAN
     Route: 041
  19. PHARMORUBICIN [Suspect]
     Active Substance: EPIRUBICIN
     Dosage: DOSE RE-INTRODUCED
     Route: 041
  20. LOSEC [Suspect]
     Active Substance: OMEPRAZOLE
     Indication: BREAST CANCER
     Route: 041
     Dates: start: 20150906, end: 20150906

REACTIONS (1)
  - Bone marrow failure [Recovering/Resolving]

NARRATIVE: CASE EVENT DATE: 20150917
